FAERS Safety Report 7548928-8 (Version None)
Quarter: 2011Q2

REPORT INFORMATION
  Report Type: 
  Country: None (occurrence: None)
  Receive Date: 20110608
  Receipt Date: 20110602
  Transmission Date: 20111010
  Serious: Yes (Other)
  Sender: FDA-Public Use
  Company Number: 2011SP025578

PATIENT
  Age: 26 Year
  Sex: Female

DRUGS (1)
  1. COPPERTONE KIDS CONTINUOUS SPRAY SPF 50 [Suspect]
     Indication: PRODUCT USED FOR UNKNOWN INDICATION
     Dosage: ; TOP
     Route: 061

REACTIONS (1)
  - SKIN CANCER [None]
